FAERS Safety Report 9364575 (Version 2)
Quarter: 2013Q4

REPORT INFORMATION
  Report Type: Report from Study
  Country: DE (occurrence: DE)
  Receive Date: 20130624
  Receipt Date: 20131212
  Transmission Date: 20140711
  Serious: Yes (Hospitalization)
  Sender: FDA-Public Use
  Company Number: PHHO2013DE008278

PATIENT
  Sex: 0

DRUGS (3)
  1. EVEROLIMUS [Suspect]
     Indication: RENAL TRANSPLANT
     Dosage: 2 MG, BID
     Route: 048
     Dates: start: 20130529
  2. SANDIMMUN NEORAL / OL [Suspect]
     Indication: RENAL TRANSPLANT
     Dosage: 125 MG, BID
     Route: 048
     Dates: start: 20130529
  3. URBASON [Suspect]
     Indication: RENAL TRANSPLANT
     Dosage: 32 MG, QD
     Route: 048
     Dates: start: 20130529

REACTIONS (1)
  - Post procedural haematoma [Recovered/Resolved]
